FAERS Safety Report 6176166-2 (Version None)
Quarter: 2009Q2

REPORT INFORMATION
  Report Type: 
  Country: None (occurrence: None)
  Receive Date: 20090501
  Receipt Date: 20080415
  Transmission Date: 20091009
  Serious: Yes (Death, Hospitalization)
  Sender: FDA-Public Use
  Company Number: US-ALEXION-A200800082

PATIENT

DRUGS (7)
  1. SOLIRIS [Suspect]
     Indication: PAROXYSMAL NOCTURNAL HAEMOGLOBINURIA
     Dosage: 600 MG, SINGLE
     Route: 042
     Dates: start: 20080331, end: 20080331
  2. FOLIC ACID [Concomitant]
     Dosage: 1 MG, QD
  3. PERCOCET-5 [Concomitant]
     Dosage: 5/325, 1-2 Q6H, PRN
     Route: 048
  4. LORAZEPAM [Concomitant]
     Indication: INSOMNIA
     Dosage: 1 MG, UNK
     Route: 048
  5. TRIMETHOPRIM + SULFAMETHOXAZOLE [Concomitant]
     Indication: INFECTION PROPHYLAXIS
     Dosage: UNK, BID
  6. DEXAMETHASONE TAB [Concomitant]
     Dosage: 10 MG, BID
     Route: 048
  7. CALCIUM WITH VITAMIN D [Concomitant]

REACTIONS (7)
  - LETHARGY [None]
  - LUNG INFECTION PSEUDOMONAL [None]
  - PNEUMONIA STAPHYLOCOCCAL [None]
  - PSEUDOMONAL SEPSIS [None]
  - SEPTIC SHOCK [None]
  - STAPHYLOCOCCAL SEPSIS [None]
  - URINARY TRACT INFECTION PSEUDOMONAL [None]
